FAERS Safety Report 24132950 (Version 1)
Quarter: 2024Q3

REPORT INFORMATION
  Report Type: Spontaneous
  Country: US (occurrence: US)
  Receive Date: 20240724
  Receipt Date: 20240724
  Transmission Date: 20241016
  Serious: No
  Sender: SANDOZ
  Company Number: US-SANDOZ-SDZ2024US067793

PATIENT
  Sex: Female

DRUGS (1)
  1. NYSTATIN [Suspect]
     Active Substance: NYSTATIN
     Indication: Candida infection
     Route: 048

REACTIONS (2)
  - Cholelithiasis [Unknown]
  - Drug ineffective [Unknown]
